FAERS Safety Report 7418798-7 (Version None)
Quarter: 2011Q2

REPORT INFORMATION
  Report Type: 
  Country: None (occurrence: None)
  Receive Date: 20110415
  Receipt Date: 20110412
  Transmission Date: 20111010
  Serious: Yes (Other)
  Sender: FDA-Public Use
  Company Number: FR-BRISTOL-MYERS SQUIBB COMPANY-15529605

PATIENT
  Age: 34 Year
  Sex: Female
  Weight: 95 kg

DRUGS (3)
  1. ZYPREXA [Suspect]
     Indication: MOOD SWINGS
     Route: 048
     Dates: start: 20090101, end: 20101218
  2. ABILIFY [Suspect]
     Route: 048
     Dates: start: 20101218, end: 20110301
  3. ZOLOFT [Suspect]
     Indication: DEPRESSION
     Route: 048
     Dates: start: 20060101, end: 20100918

REACTIONS (5)
  - PREGNANCY [None]
  - NORMAL NEWBORN [None]
  - GESTATIONAL DIABETES [None]
  - POST PROCEDURAL HAEMORRHAGE [None]
  - NAUSEA [None]
